FAERS Safety Report 6803117-7 (Version None)
Quarter: 2010Q2

REPORT INFORMATION
  Report Type: 
  Country: None (occurrence: None)
  Receive Date: 20100628
  Receipt Date: 20100617
  Transmission Date: 20101027
  Serious: Yes (Hospitalization)
  Sender: FDA-Public Use
  Company Number: A0845698A

PATIENT
  Age: 55 Year
  Sex: Female
  Weight: 100.5 kg

DRUGS (7)
  1. AVANDIA [Suspect]
     Indication: DIABETES MELLITUS
     Dosage: 4MG TWICE PER DAY
     Route: 048
     Dates: start: 20040101, end: 20070101
  2. DIOVAN [Concomitant]
  3. METOPROLOL [Concomitant]
  4. GLYBURIDE [Concomitant]
  5. NORVASC [Concomitant]
  6. METFORMIN HCL [Concomitant]
  7. HYDROCHLOROTHIAZIDE [Concomitant]

REACTIONS (4)
  - CARDIAC FAILURE CONGESTIVE [None]
  - CEREBROVASCULAR ACCIDENT [None]
  - INTRACARDIAC THROMBUS [None]
  - MYOCARDIAL ISCHAEMIA [None]
